FAERS Safety Report 7423327-8 (Version None)
Quarter: 2011Q2

REPORT INFORMATION
  Report Type: 
  Country: None (occurrence: None)
  Receive Date: 20110419
  Receipt Date: 20110404
  Transmission Date: 20111010
  Serious: Yes (Other)
  Sender: FDA-Public Use
  Company Number: PHHY2010CA25826

PATIENT
  Sex: Female

DRUGS (2)
  1. ZOMETA [Suspect]
     Indication: BREAST CANCER METASTATIC
     Dosage: 4 MG EVERY THREE WEEKS
     Route: 042
     Dates: start: 20100414
  2. ZOMETA [Suspect]
     Dosage: 4 MG EVERY 4 WEEKS
     Route: 042

REACTIONS (17)
  - BLOOD POTASSIUM DECREASED [None]
  - BLOOD ALKALINE PHOSPHATASE INCREASED [None]
  - BLOOD ALBUMIN DECREASED [None]
  - MEAN CELL HAEMOGLOBIN CONCENTRATION INCREASED [None]
  - HEART RATE INCREASED [None]
  - LYMPHOCYTE COUNT DECREASED [None]
  - BLOOD CHLORIDE DECREASED [None]
  - ASPARTATE AMINOTRANSFERASE INCREASED [None]
  - HAEMOGLOBIN DECREASED [None]
  - BLOOD SODIUM DECREASED [None]
  - BLOOD LACTATE DEHYDROGENASE INCREASED [None]
  - HAEMATOCRIT DECREASED [None]
  - BLOOD PRESSURE SYSTOLIC INCREASED [None]
  - MEAN PLATELET VOLUME DECREASED [None]
  - BLOOD CALCIUM DECREASED [None]
  - RED CELL DISTRIBUTION WIDTH INCREASED [None]
  - RED BLOOD CELL COUNT DECREASED [None]
